FAERS Safety Report 21865529 (Version 2)
Quarter: 2023Q1

REPORT INFORMATION
  Report Type: Other
  Country: BE (occurrence: None)
  Receive Date: 20230116
  Receipt Date: 20230223
  Transmission Date: 20230417
  Serious: Yes (Other)
  Sender: FDA-Public Use
  Company Number: BE-ROCHE-3264513

PATIENT
  Age: 79 Year
  Sex: Male

DRUGS (1)
  1. TRASTUZUMAB [Suspect]
     Active Substance: TRASTUZUMAB
     Indication: Breast cancer stage III
     Dosage: EVERY 3 WEEKS
     Route: 065

REACTIONS (3)
  - Ulcerative keratitis [Unknown]
  - Corneal disorder [Recovered/Resolved]
  - Corneal toxicity [Unknown]
